FAERS Safety Report 10589640 (Version 1)
Quarter: 2014Q4

REPORT INFORMATION
  Report Type: Spontaneous
  Country: US (occurrence: None)
  Receive Date: 20141117
  Receipt Date: 20141117
  Transmission Date: 20150529
  Serious: Yes (Other)
  Sender: FDA-Public Use
  Company Number: None

PATIENT
  Age: 55 Year
  Sex: Female
  Weight: 66.23 kg

DRUGS (1)
  1. TECFIDERA [Suspect]
     Active Substance: DIMETHYL FUMARATE
     Indication: MULTIPLE SCLEROSIS
     Dosage: 1 PILL TAKEN BY MOUTH
     Route: 048
     Dates: start: 20130520, end: 20140418

REACTIONS (2)
  - Cystitis [None]
  - White blood cell count abnormal [None]

NARRATIVE: CASE EVENT DATE: 20140613
